FAERS Safety Report 26138712 (Version 3)
Quarter: 2025Q4

REPORT INFORMATION
  Report Type: Report from Study
  Country: US (occurrence: US)
  Receive Date: 20251210
  Receipt Date: 20251226
  Transmission Date: 20260118
  Serious: Yes (Other)
  Sender: TAKEDA
  Company Number: US-TAKEDA-2025TUS111031

PATIENT
  Age: 30 Year
  Sex: Male

DRUGS (1)
  1. VEDOLIZUMAB [Suspect]
     Active Substance: VEDOLIZUMAB
     Indication: Product used for unknown indication
     Dosage: 300 MILLIGRAM

REACTIONS (8)
  - Crohn^s disease [Unknown]
  - Abscess intestinal [Unknown]
  - Pneumonia [Unknown]
  - Anxiety [Unknown]
  - Osteoporosis [Unknown]
  - Vitamin B complex deficiency [Unknown]
  - Abnormal loss of weight [Unknown]
  - Bronchitis [Unknown]

NARRATIVE: CASE EVENT DATE: 20160913
